FAERS Safety Report 20070743 (Version 2)
Quarter: 2021Q4

REPORT INFORMATION
  Report Type: Spontaneous
  Country: US (occurrence: US)
  Receive Date: 20211115
  Receipt Date: 20211126
  Transmission Date: 20220303
  Serious: Yes (Other)
  Sender: FDA-Public Use
  Company Number: US-ALLERGAN-2138386US

PATIENT
  Sex: Female

DRUGS (8)
  1. BOTOX COSMETIC [Suspect]
     Active Substance: ONABOTULINUMTOXINA
     Indication: Skin wrinkling
     Dosage: 26 UNITS, SINGLE
     Dates: start: 20211025, end: 20211025
  2. BOTOX COSMETIC [Suspect]
     Active Substance: ONABOTULINUMTOXINA
     Indication: Skin wrinkling
     Dosage: 12 UNK, SINGLE
     Dates: start: 20211025, end: 20211025
  3. ASPIRIN [Concomitant]
     Active Substance: ASPIRIN
  4. PROLIA [Concomitant]
     Active Substance: DENOSUMAB
  5. ALEVE [Concomitant]
     Active Substance: NAPROXEN SODIUM
  6. VITAMIN D [Concomitant]
     Active Substance: VITAMIN D NOS
  7. CALCIUM [Concomitant]
     Active Substance: CALCIUM
  8. MAGNESIUM [Concomitant]
     Active Substance: MAGNESIUM

REACTIONS (10)
  - Loss of consciousness [Recovered/Resolved]
  - Feeling abnormal [Not Recovered/Not Resolved]
  - Nerve injury [Unknown]
  - Off label use [Unknown]
  - Headache [Unknown]
  - Dizziness [Unknown]
  - Hypoaesthesia [Unknown]
  - Visual impairment [Recovered/Resolved]
  - Injection site swelling [Recovered/Resolved]
  - Facial paralysis [Not Recovered/Not Resolved]

NARRATIVE: CASE EVENT DATE: 20211025
